FAERS Safety Report 8619844-5 (Version None)
Quarter: 2012Q3

REPORT INFORMATION
  Report Type: 
  Country: None (occurrence: None)
  Receive Date: 20120824
  Receipt Date: 20120820
  Transmission Date: 20120928
  Serious: Yes (Hospitalization, Other)
  Sender: FDA-Public Use
  Company Number: FR-UCBSA-064068

PATIENT
  Age: 39 Year
  Sex: Male

DRUGS (3)
  1. MALOCIDE [Suspect]
     Indication: CEREBRAL TOXOPLASMOSIS
     Dosage: 50 MG TABLET
     Route: 048
     Dates: start: 20120515, end: 20120525
  2. KEPPRA [Suspect]
     Indication: EPILEPSY
     Dates: start: 20120515, end: 20120525
  3. SULFADIAZINE [Suspect]
     Indication: CEREBRAL TOXOPLASMOSIS
     Dosage: 500 MG
     Route: 048
     Dates: start: 20120515, end: 20120525

REACTIONS (3)
  - STEVENS-JOHNSON SYNDROME [None]
  - CYTOLYTIC HEPATITIS [None]
  - BLOOD CREATININE INCREASED [None]
